FAERS Safety Report 11873569 (Version 1)
Quarter: 2015Q4

REPORT INFORMATION
  Report Type: Spontaneous
  Country: FR (occurrence: FR)
  Receive Date: 20151228
  Receipt Date: 20151228
  Transmission Date: 20160305
  Serious: Yes (Hospitalization, Other)
  Sender: FDA-Public Use
  Company Number: FR-PFIZER INC-2015471790

PATIENT
  Age: 77 Year
  Sex: Male

DRUGS (6)
  1. INEXIUM [Concomitant]
     Active Substance: ESOMEPRAZOLE
     Dosage: UNK
     Dates: start: 20151120
  2. AMIODARONE HCL [Suspect]
     Active Substance: AMIODARONE HYDROCHLORIDE
     Indication: ATRIAL FIBRILLATION
     Dosage: 200 MG, DAILY
     Route: 048
     Dates: start: 20150920, end: 20151124
  3. BISOPROLOL FUMARATE. [Suspect]
     Active Substance: BISOPROLOL FUMARATE
     Indication: ATRIAL FIBRILLATION
     Dosage: 1.25 MG, 2X/DAY
     Route: 048
     Dates: start: 20150920, end: 20151124
  4. BACTRIM [Suspect]
     Active Substance: SULFAMETHOXAZOLE\TRIMETHOPRIM
     Indication: PNEUMOCYSTIS JIROVECII PNEUMONIA
     Dosage: 5 DF, DAILY
     Route: 048
     Dates: start: 20151114, end: 20151123
  5. PRIMPERAN [Suspect]
     Active Substance: METOCLOPRAMIDE HYDROCHLORIDE
     Indication: PNEUMOCYSTIS JIROVECII PNEUMONIA
     Dosage: 10 MG, 3X/DAY
     Route: 048
     Dates: start: 20151120, end: 20151124
  6. RAMIPRIL. [Suspect]
     Active Substance: RAMIPRIL
     Indication: ATRIAL FIBRILLATION
     Dosage: 1.25 MG, 2X/DAY
     Route: 048
     Dates: start: 20150920, end: 20151124

REACTIONS (4)
  - Atrioventricular block complete [Recovered/Resolved]
  - Pneumocystis jirovecii pneumonia [Unknown]
  - Hyperkalaemia [Unknown]
  - Acute kidney injury [Unknown]

NARRATIVE: CASE EVENT DATE: 20151124
